FAERS Safety Report 12549744 (Version 2)
Quarter: 2017Q2

REPORT INFORMATION
  Report Type: Spontaneous
  Country: US (occurrence: US)
  Receive Date: 20160712
  Receipt Date: 20170530
  Transmission Date: 20170830
  Serious: Yes (Hospitalization, Other)
  Sender: FDA-Public Use
  Company Number: US-ABBVIE-16P-163-1669987-00

PATIENT
  Sex: Female

DRUGS (1)
  1. CREON [Suspect]
     Active Substance: PANCRELIPASE AMYLASE\PANCRELIPASE LIPASE\PANCRELIPASE PROTEASE
     Indication: PRODUCT USED FOR UNKNOWN INDICATION
     Route: 065

REACTIONS (11)
  - Lipase abnormal [Unknown]
  - Feeling guilty [Unknown]
  - Nausea [Unknown]
  - Amylase abnormal [Unknown]
  - Depressed mood [Unknown]
  - Myocardial infarction [Unknown]
  - Fall [Unknown]
  - Anxiety [Unknown]
  - Pain [Unknown]
  - Panic attack [Unknown]
  - Coronary artery occlusion [Unknown]
